FAERS Safety Report 13623580 (Version 2)
Quarter: 2017Q2

REPORT INFORMATION
  Report Type: Spontaneous
  Country: DE (occurrence: DE)
  Receive Date: 20170608
  Receipt Date: 20170630
  Transmission Date: 20170830
  Serious: Yes (Other)
  Sender: FDA-Public Use
  Company Number: DE-TORRENT-00006568

PATIENT
  Age: 27 Year
  Sex: Male

DRUGS (7)
  1. METHYLPHENIDATE HYDROCHLORIDE. [Suspect]
     Active Substance: METHYLPHENIDATE HYDROCHLORIDE
  2. DICLOFENAC [Concomitant]
     Active Substance: DICLOFENAC
  3. SERTRALINE [Suspect]
     Active Substance: SERTRALINE HYDROCHLORIDE
  4. QUETIAPINE. [Suspect]
     Active Substance: QUETIAPINE
  5. QUETIAPINE. [Concomitant]
     Active Substance: QUETIAPINE
  6. PANTOPRAZOLE [Concomitant]
     Active Substance: PANTOPRAZOLE
  7. PREGABALIN. [Suspect]
     Active Substance: PREGABALIN

REACTIONS (3)
  - Myalgia [Recovering/Resolving]
  - Blood creatine phosphokinase increased [Recovering/Resolving]
  - Muscular weakness [Recovering/Resolving]

NARRATIVE: CASE EVENT DATE: 20160809
